FAERS Safety Report 4596120-1 (Version None)
Quarter: 2005Q1

REPORT INFORMATION
  Report Type: 
  Country: None (occurrence: None)
  Receive Date: 20050225
  Receipt Date: 20050210
  Transmission Date: 20050727
  Serious: Yes (Congenital Anomaly, Other)
  Sender: FDA-Public Use
  Company Number: 2005-BP-02218RO

PATIENT
  Age: 68 Year
  Sex: Female
  Weight: 54.5 kg

DRUGS (1)
  1. MEGACE [Suspect]
     Indication: DECREASED APPETITE
     Dosage: 400 MG TWICE DAILY (NR), PO
     Route: 048

REACTIONS (15)
  - ABDOMINAL DISTENSION [None]
  - ADRENAL DISORDER [None]
  - BLOOD CORTICOTROPHIN DECREASED [None]
  - BONE DENSITY INCREASED [None]
  - CORTISOL FREE URINE ABNORMAL [None]
  - CREATINE URINE INCREASED [None]
  - ECCHYMOSIS [None]
  - FACE OEDEMA [None]
  - FEELING ABNORMAL [None]
  - KYPHOSIS [None]
  - NAUSEA [None]
  - OSTEOPOROSIS [None]
  - SPINAL COMPRESSION FRACTURE [None]
  - TENDERNESS [None]
  - VOMITING [None]
